FAERS Safety Report 12587053 (Version 3)
Quarter: 2017Q1

REPORT INFORMATION
  Report Type: Report from Study
  Country: FR (occurrence: FR)
  Receive Date: 20160725
  Receipt Date: 20170207
  Transmission Date: 20170428
  Serious: Yes (Other)
  Sender: FDA-Public Use
  Company Number: FR-TOLMAR, INC.-2016FR007066

PATIENT
  Sex: Male

DRUGS (2)
  1. ELIGARD [Suspect]
     Active Substance: LEUPROLIDE ACETATE
     Indication: PROSTATE CANCER
     Dosage: UNK, Q3MONTHS
     Route: 065
     Dates: start: 201505
  2. CASODEX [Concomitant]
     Active Substance: BICALUTAMIDE
     Dosage: UNK
     Dates: start: 201301

REACTIONS (1)
  - Hormone-refractory prostate cancer [Unknown]
